FAERS Safety Report 4287117-X (Version None)
Quarter: 2004Q1

REPORT INFORMATION
  Report Type: 
  Country: None (occurrence: None)
  Receive Date: 20040126
  Receipt Date: 20030829
  Transmission Date: 20041129
  Serious: No
  Sender: FDA-Public Use
  Company Number: USA030945856

PATIENT
  Age: 67 Year
  Sex: Female
  Weight: 91 kg

DRUGS (12)
  1. FORTEO [Suspect]
     Indication: OSTEOPOROSIS
     Dosage: 20 UG/DAY
     Dates: start: 20030101
  2. FUROSEMIDE [Concomitant]
  3. POTASSIUM CHLORIDE [Concomitant]
  4. ATACAND [Concomitant]
  5. TOPROL-XL [Concomitant]
  6. DETROL [Concomitant]
  7. OXYCONTIN [Concomitant]
  8. PERCOCET [Concomitant]
  9. BEXTRA [Concomitant]
  10. CALCIUM WITH VITAMIN D [Concomitant]
  11. VITAMIN E [Concomitant]
  12. LIDOCAINE [Concomitant]

REACTIONS (3)
  - DERMATITIS EXFOLIATIVE [None]
  - INJECTION SITE STINGING [None]
  - SKIN BURNING SENSATION [None]
